FAERS Safety Report 5224486-8 (Version None)
Quarter: 2007Q1

REPORT INFORMATION
  Report Type: 
  Country: None (occurrence: None)
  Receive Date: 20070130
  Receipt Date: 20070122
  Transmission Date: 20070707
  Serious: Yes (Other)
  Sender: FDA-Public Use
  Company Number: SE-PFIZER INC-2007004267

PATIENT
  Age: 53 Year
  Sex: Male
  Weight: 87.6 kg

DRUGS (2)
  1. GENOTROPIN [Suspect]
     Indication: HYPOPITUITARISM
     Dosage: DAILY DOSE:.1MG
     Route: 058
     Dates: start: 20040727, end: 20061217
  2. TESTOSTERONE [Concomitant]
     Route: 062

REACTIONS (2)
  - NEOPLASM PROGRESSION [None]
  - PITUITARY TUMOUR BENIGN [None]
